FAERS Safety Report 23330194 (Version 1)
Quarter: 2023Q4

REPORT INFORMATION
  Report Type: Spontaneous
  Country: US (occurrence: None)
  Receive Date: 20231222
  Receipt Date: 20231222
  Transmission Date: 20240110
  Serious: No
  Sender: FDA-Public Use
  Company Number: 2023A290374

PATIENT
  Age: 24087 Day

DRUGS (1)
  1. BYDUREON BCISE [Suspect]
     Active Substance: EXENATIDE
     Indication: Type 2 diabetes mellitus

REACTIONS (8)
  - Injection site bruising [Unknown]
  - Injection site mass [Unknown]
  - Glycosylated haemoglobin abnormal [Unknown]
  - Injection site haemorrhage [Unknown]
  - Weight decreased [Unknown]
  - Injection site pain [Unknown]
  - Incorrect dose administered by device [Unknown]
  - Wrong technique in device usage process [Unknown]

NARRATIVE: CASE EVENT DATE: 20231220
